FAERS Safety Report 4927899-4 (Version None)
Quarter: 2006Q1

REPORT INFORMATION
  Report Type: 
  Country: None (occurrence: None)
  Receive Date: 20060222
  Receipt Date: 20060213
  Transmission Date: 20060701
  Serious: Yes (Death, Hospitalization, Other)
  Sender: FDA-Public Use
  Company Number: 200610773BWH

PATIENT
  Age: 67 Year
  Sex: Male

DRUGS (2)
  1. SORAFENIB [Suspect]
     Indication: METASTATIC MALIGNANT MELANOMA
     Dosage: 400 MG, BID, ORAL
     Route: 048
     Dates: start: 20051222, end: 20060113
  2. TEMOZOLOMIDE [Suspect]
     Dosage: QD,
     Dates: start: 20051229, end: 20060113

REACTIONS (4)
  - INTESTINAL OBSTRUCTION [None]
  - LEG AMPUTATION [None]
  - SURGICAL PROCEDURE REPEATED [None]
  - THROMBOSIS [None]
